FAERS Safety Report 4964340-X (Version None)
Quarter: 2006Q2

REPORT INFORMATION
  Report Type: 
  Country: None (occurrence: None)
  Receive Date: 20060406
  Receipt Date: 20060330
  Transmission Date: 20061013
  Serious: Yes (Hospitalization)
  Sender: FDA-Public Use
  Company Number: PHRM2006FR01201

PATIENT
  Age: 68 Year
  Sex: Female

DRUGS (6)
  1. ESIDRIX [Suspect]
     Dosage: 25 MG, QD
     Route: 048
     Dates: start: 20060107, end: 20060120
  2. TRIATEC [Concomitant]
     Indication: HYPERTENSION
     Route: 048
  3. TAHOR [Concomitant]
     Indication: DYSLIPIDAEMIA
     Route: 048
  4. AMLOR [Concomitant]
     Route: 048
     Dates: start: 20060101
  5. CORDARONE [Concomitant]
     Route: 048
     Dates: start: 20060101
  6. PREVISCAN [Concomitant]
     Route: 048
     Dates: start: 20060101

REACTIONS (3)
  - BLOOD CREATINE INCREASED [None]
  - CHEST PAIN [None]
  - HYPOKALAEMIA [None]
